FAERS Safety Report 6135298-5 (Version None)
Quarter: 2009Q1

REPORT INFORMATION
  Report Type: 
  Country: None (occurrence: None)
  Receive Date: 20090327
  Receipt Date: 20090320
  Transmission Date: 20090719
  Serious: Yes (Life-Threatening, Hospitalization, Other)
  Sender: FDA-Public Use
  Company Number: US-ELI_LILLY_AND_COMPANY-US200812002394

PATIENT
  Sex: Male

DRUGS (19)
  1. BYETTA [Suspect]
     Dosage: 5 UG, UNKNOWN
     Route: 065
     Dates: start: 20070201, end: 20080101
  2. VALIUM [Concomitant]
     Dosage: 5 MG, 3/D
     Route: 048
  3. OXYCODONE HCL [Concomitant]
     Dosage: 10 MG, 4/D
     Route: 048
  4. HYDROCHLOROTHIAZIDE [Concomitant]
     Dosage: 25 MG, DAILY (1/D)
     Route: 048
  5. GLYBURIDE [Concomitant]
     Dosage: 5 MG, EACH MORNING
  6. GLYBURIDE [Concomitant]
     Dosage: 2.5 MG, EACH EVENING
  7. KADIAN [Concomitant]
     Dosage: 100 MG, 2/D
     Route: 048
  8. LITHIUM CARBONATE [Concomitant]
     Dosage: 900 MG, EACH EVENING
     Route: 048
  9. OMEPRAZOLE [Concomitant]
     Dosage: 20 MG, 2/D
     Route: 048
  10. GEMFIBROZIL [Concomitant]
     Dosage: 600 MG, 2/D
     Route: 048
  11. ZYRTEC [Concomitant]
     Dosage: 10 MG, UNK
  12. LOTRISONE [Concomitant]
  13. HYDROCODONE BITARTRATE AND ACETAMINOPHEN [Concomitant]
  14. LISINOPRIL [Concomitant]
  15. METFORMIN [Concomitant]
  16. TESTOSTERONE [Concomitant]
  17. SIMVASTATIN [Concomitant]
  18. VARDENAFIL [Concomitant]
  19. ZOLMITRIPTAN [Concomitant]

REACTIONS (24)
  - ACUTE SINUSITIS [None]
  - AGITATION [None]
  - CHOLECYSTITIS [None]
  - CHOLELITHIASIS [None]
  - DEHYDRATION [None]
  - DELIRIUM [None]
  - HAEMORRHAGE [None]
  - HEPARIN-INDUCED THROMBOCYTOPENIA [None]
  - HEPATIC VEIN THROMBOSIS [None]
  - HYPERGLYCAEMIA [None]
  - HYPERSOMNIA [None]
  - INFLUENZA [None]
  - MULTI-ORGAN FAILURE [None]
  - MYOCARDIAL INFARCTION [None]
  - PANCREATIC PSEUDOCYST [None]
  - PANCREATITIS [None]
  - PNEUMONIA [None]
  - POST-TRAUMATIC STRESS DISORDER [None]
  - RESPIRATORY FAILURE [None]
  - SEPSIS [None]
  - SEPTIC SHOCK [None]
  - TACHYPNOEA [None]
  - UNRESPONSIVE TO STIMULI [None]
  - UPPER RESPIRATORY TRACT INFECTION [None]
